FAERS Safety Report 15154448 (Version 2)
Quarter: 2018Q3

REPORT INFORMATION
  Report Type: Report from Study
  Country: US (occurrence: US)
  Receive Date: 20180717
  Receipt Date: 20180821
  Transmission Date: 20181010
  Serious: Yes (Hospitalization, Other)
  Sender: FDA-Public Use
  Company Number: US-JNJFOC-20180606126

PATIENT
  Age: 31 Year
  Sex: Male
  Weight: 182.35 kg

DRUGS (20)
  1. CLOTRIMAZOLE AND BETAMETHASONE [Concomitant]
     Active Substance: BETAMETHASONE\CLOTRIMAZOLE
     Dosage: 1?0.05 % EXTERNAL CREAM APPLY TO AFFECTED AREAS
     Route: 065
  2. DOXAZOSIN MESYLATE. [Concomitant]
     Active Substance: DOXAZOSIN MESYLATE
     Route: 048
  3. HYDROCODONE/ACETAMINOPHEN [Concomitant]
     Active Substance: ACETAMINOPHEN\HYDROCODONE
     Indication: PAIN
     Dosage: 7.5?325 MG
     Route: 048
  4. REMICADE [Suspect]
     Active Substance: INFLIXIMAB
     Indication: CROHN^S DISEASE
     Route: 042
     Dates: start: 20141114
  5. CARVEDIOL [Concomitant]
     Active Substance: CARVEDILOL
     Route: 048
  6. TRIBENZOR [Concomitant]
     Active Substance: AMLODIPINE BESYLATE\HYDROCHLOROTHIAZIDE\OLMESARTAN MEDOXOMIL
     Dosage: 40?5?25 MG
     Route: 048
  7. STELARA [Suspect]
     Active Substance: USTEKINUMAB
     Indication: CROHN^S DISEASE
     Dosage: 130 MG/26 ML (520 MG), 1 TIME FUSION AND THEN 90 MG SQ INJECTIONS Q 8 WEEKS, 2ND DOSE ON 06?JUL?2018
     Route: 058
     Dates: start: 20180531
  8. ZOFRAN [Concomitant]
     Active Substance: ONDANSETRON HYDROCHLORIDE
     Indication: NAUSEA
     Route: 048
  9. LASIX [Concomitant]
     Active Substance: FUROSEMIDE
     Route: 048
  10. ZOFRAN [Concomitant]
     Active Substance: ONDANSETRON HYDROCHLORIDE
     Indication: VOMITING
     Route: 048
  11. REMICADE [Suspect]
     Active Substance: INFLIXIMAB
     Indication: CROHN^S DISEASE
     Route: 042
     Dates: start: 20120411
  12. REMICADE [Suspect]
     Active Substance: INFLIXIMAB
     Indication: CROHN^S DISEASE
     Route: 042
     Dates: start: 20180430, end: 20180516
  13. ALIGN [Concomitant]
     Active Substance: BIFIDOBACTERIUM LONGUM SUBSP. INFANTIS
     Dosage: PROBIOTIC PRODUCT
     Route: 048
  14. PROCTOFOAM HC [Concomitant]
     Active Substance: HYDROCORTISONE ACETATE\PRAMOXINE HYDROCHLORIDE
     Dosage: APPLY 2?3 TIMES DAILY PRN
     Route: 054
  15. HYDROCORTISONE W/PRAMOXINE [Concomitant]
     Active Substance: HYDROCORTISONE\PRAMOXINE
     Dosage: 2.5 ? 1 %
     Route: 054
  16. PHENERGAN [Concomitant]
     Active Substance: PROMETHAZINE HYDROCHLORIDE
     Route: 065
  17. MEDROL [Concomitant]
     Active Substance: METHYLPREDNISOLONE
     Dosage: 8 TABS A DAY, THEN 6 TABS, THEN 5 THEN 4 TABS, 3 TABS, 2 TABS AND 1 TAB (EACH FOR 7 DAYS) THEN DC
     Route: 048
  18. OMEPRAZOLE. [Concomitant]
     Active Substance: OMEPRAZOLE
     Route: 048
  19. HYDROCODONE [Concomitant]
     Active Substance: HYDROCODONE
     Indication: PAIN
     Route: 048
  20. CLINDAMYCIN. [Concomitant]
     Active Substance: CLINDAMYCIN
     Route: 065

REACTIONS (10)
  - Nephrolithiasis [Unknown]
  - Gastrooesophageal reflux disease [Unknown]
  - Off label use [Unknown]
  - Abscess [Recovered/Resolved with Sequelae]
  - Product use issue [Unknown]
  - Crohn^s disease [Recovering/Resolving]
  - Gastrointestinal fistula [Unknown]
  - Acute kidney injury [Unknown]
  - Drug ineffective [Unknown]
  - Atelectasis [Unknown]

NARRATIVE: CASE EVENT DATE: 20141114
